FAERS Safety Report 10526816 (Version 2)
Quarter: 2014Q4

REPORT INFORMATION
  Report Type: Spontaneous
  Country: TN (occurrence: TN)
  Receive Date: 20141020
  Receipt Date: 20141020
  Transmission Date: 20150528
  Serious: Yes (Other)
  Sender: FDA-Public Use
  Company Number: TN-RANBAXY-2014RR-84404

PATIENT
  Age: 58 Year
  Sex: Female

DRUGS (2)
  1. METFORMIN [Suspect]
     Active Substance: METFORMIN HYDROCHLORIDE
     Indication: INSULIN RESISTANCE
     Dosage: 1700 MG, DAILY
     Route: 065
     Dates: start: 201002
  2. METFORMIN [Suspect]
     Active Substance: METFORMIN HYDROCHLORIDE
     Indication: TYPE 2 DIABETES MELLITUS
     Dosage: 2550 MG, DAILY
     Route: 065
     Dates: start: 2007

REACTIONS (1)
  - Lichen planus [Recovered/Resolved]
